FAERS Safety Report 10176019 (Version 2)
Quarter: 2014Q2

REPORT INFORMATION
  Report Type: Spontaneous
  Country: GB (occurrence: GB)
  Receive Date: 20140516
  Receipt Date: 20140521
  Transmission Date: 20141212
  Serious: Yes (Other)
  Sender: FDA-Public Use
  Company Number: GB-ASTRAZENECA-2014SE31328

PATIENT
  Age: 72 Year
  Sex: Female

DRUGS (6)
  1. OMEPRAZOLE [Suspect]
     Route: 048
  2. ANTIBIOTICS NOS [Concomitant]
     Indication: HELICOBACTER INFECTION
  3. CANDESARTAN [Concomitant]
  4. DABIGATRAN [Concomitant]
  5. EZETROL [Concomitant]
  6. GLICLAZIDE [Concomitant]

REACTIONS (6)
  - Tongue discolouration [Recovering/Resolving]
  - Anosmia [Recovered/Resolved]
  - Ageusia [Recovered/Resolved]
  - Tongue exfoliation [Recovering/Resolving]
  - Headache [Recovering/Resolving]
  - Stomatitis [Recovering/Resolving]
